FAERS Safety Report 8760093 (Version 4)
Quarter: 2012Q4

REPORT INFORMATION
  Report Type: 
  Country: JP (occurrence: JP)
  Receive Date: 20120829
  Receipt Date: 20121227
  Transmission Date: 20130627
  Serious: Yes (Hospitalization, Other)
  Sender: FDA-Public Use
  Company Number: JP-009507513-2012SP025224

PATIENT
  Age: 50 Year
  Sex: Male
  Weight: 98 kg

DRUGS (22)
  1. PEGINTRON [Suspect]
     Indication: CHRONIC HEPATITIS C
     Dosage: 1.5 Microgram per kilogram, qw,daily dose unknown
     Route: 058
     Dates: start: 20120126, end: 20120712
  2. REBETOL [Suspect]
     Indication: CHRONIC HEPATITIS C
     Dosage: 1000 mg, QD
     Route: 048
     Dates: start: 20120126, end: 20120222
  3. REBETOL [Suspect]
     Dosage: 600 mg, QD
     Route: 048
     Dates: start: 20120223, end: 20120328
  4. REBETOL [Suspect]
     Dosage: 200 mg, QD
     Route: 048
     Dates: start: 20120329, end: 20120407
  5. REBETOL [Suspect]
     Dosage: 400 mg, QD
     Route: 048
     Dates: start: 20120410, end: 20120415
  6. REBETOL [Suspect]
     Dosage: 600 mg, QD
     Route: 048
     Dates: start: 20120416, end: 20120509
  7. REBETOL [Suspect]
     Dosage: 800 mg, qd
     Route: 048
     Dates: start: 20120510, end: 20120712
  8. TELAVIC [Suspect]
     Indication: HEPATITIS C
     Dosage: 2250 mg, qd
     Route: 048
     Dates: start: 20120126, end: 20120205
  9. TELAVIC [Suspect]
     Dosage: 1500 mg, qd
     Route: 048
     Dates: start: 20120206, end: 20120222
  10. TELAVIC [Suspect]
     Dosage: 2000 mg, QD
     Route: 048
     Dates: start: 20120223
  11. TELAVIC [Suspect]
     Dosage: 1500 mg, qd
     Route: 048
     Dates: end: 20120404
  12. TELAVIC [Suspect]
     Dosage: 1000 mg, qd
     Route: 048
     Dates: start: 20120405, end: 20120407
  13. TELAVIC [Suspect]
     Dosage: 1000 mg, qd
     Route: 048
     Dates: start: 20120410, end: 20120412
  14. TELAVIC [Suspect]
     Dosage: 1500 mg, qd
     Route: 048
     Dates: start: 20120414, end: 20120418
  15. GASMOTIN [Concomitant]
     Indication: PROPHYLAXIS
     Dosage: 15 mg, qd,formuatipon:POR
     Route: 048
     Dates: start: 20120127
  16. OLMETEC [Concomitant]
     Dosage: 20 mg, qd,formulation:POR
     Route: 048
  17. CONIEL [Concomitant]
     Indication: HYPERTENSION
     Dosage: 4 mg, qd,formulation:POR
     Route: 048
  18. CONIEL [Concomitant]
     Dosage: 4 mg, qd,formulation:POR
     Route: 048
     Dates: start: 20120418
  19. LOXONIN [Concomitant]
     Dosage: 60 mg, qd, as needed,formulation:POR,daily dose unknown
     Route: 048
  20. PREDONINE [Concomitant]
     Indication: ERYTHEMA
     Dosage: 20 mg, qd,formulation:POR
     Route: 048
     Dates: end: 20120430
  21. PREDONINE [Concomitant]
     Indication: RASH
     Dosage: 10 mg, qd,formulation:POR
     Route: 048
     Dates: start: 20120501, end: 20120507
  22. PREDONINE [Concomitant]
     Dosage: 5 mg, qd,formulation:POR
     Route: 048
     Dates: start: 20120508, end: 20120510

REACTIONS (2)
  - Renal impairment [Recovering/Resolving]
  - Haemoglobin decreased [Recovering/Resolving]
